FAERS Safety Report 23697380 (Version 2)
Quarter: 2024Q2

REPORT INFORMATION
  Report Type: Spontaneous
  Country: JP (occurrence: JP)
  Receive Date: 20240402
  Receipt Date: 20240425
  Transmission Date: 20240716
  Serious: Yes (Life-Threatening, Hospitalization, Other)
  Sender: FDA-Public Use
  Company Number: JP-MSD-2401JPN005134J

PATIENT
  Age: 64 Year
  Sex: Male

DRUGS (5)
  1. KEYTRUDA [Suspect]
     Active Substance: PEMBROLIZUMAB
     Indication: Clear cell renal cell carcinoma
     Dosage: 200 MILLIGRAM
     Route: 041
     Dates: start: 202201, end: 202204
  2. KEYTRUDA [Suspect]
     Active Substance: PEMBROLIZUMAB
     Dosage: 200 MILLIGRAM
     Route: 041
     Dates: start: 202206, end: 2022
  3. AXITINIB [Suspect]
     Active Substance: AXITINIB
     Indication: Clear cell renal cell carcinoma
     Dosage: 6 MILLIGRAM
     Route: 065
     Dates: start: 202201, end: 202204
  4. AXITINIB [Suspect]
     Active Substance: AXITINIB
     Dosage: 4 MILLIGRAM
     Route: 065
     Dates: start: 2022, end: 2022
  5. PAZOPANIB HYDROCHLORIDE [Suspect]
     Active Substance: PAZOPANIB HYDROCHLORIDE
     Indication: Clear cell renal cell carcinoma
     Dosage: 400 MILLIGRAM
     Route: 065
     Dates: start: 202206, end: 202301

REACTIONS (1)
  - Haemophagocytic lymphohistiocytosis [Recovering/Resolving]

NARRATIVE: CASE EVENT DATE: 20220601
